FAERS Safety Report 10253166 (Version 1)
Quarter: 2014Q2

REPORT INFORMATION
  Report Type: Spontaneous
  Country: CN (occurrence: CN)
  Receive Date: 20140623
  Receipt Date: 20140623
  Transmission Date: 20141212
  Serious: Yes (Hospitalization)
  Sender: FDA-Public Use
  Company Number: CN-GLAXOSMITHKLINE-B1006172A

PATIENT
  Age: 28 Year
  Sex: Male
  Weight: 70 kg

DRUGS (1)
  1. TAGAMET [Suspect]
     Indication: GASTROENTERITIS
     Dosage: .4G PER DAY
     Route: 042
     Dates: start: 20130622, end: 20130622

REACTIONS (3)
  - Pruritus generalised [Recovering/Resolving]
  - Urticaria [Recovering/Resolving]
  - Rash generalised [Recovering/Resolving]
